FAERS Safety Report 7552111-X (Version None)
Quarter: 2011Q2

REPORT INFORMATION
  Report Type: 
  Country: None (occurrence: None)
  Receive Date: 20110616
  Receipt Date: 20110613
  Transmission Date: 20111010
  Serious: Yes (Death)
  Sender: FDA-Public Use
  Company Number: PHHY2011US52048

PATIENT
  Sex: Male

DRUGS (3)
  1. TEMODAR [Concomitant]
  2. GLEEVEC [Suspect]
     Indication: CHRONIC MYELOID LEUKAEMIA
     Dosage: 400 MG, DAILY
     Route: 048
     Dates: start: 20080124
  3. ARANESP [Concomitant]

REACTIONS (2)
  - MALIGNANT MELANOMA [None]
  - NEOPLASM MALIGNANT [None]
